FAERS Safety Report 15613111 (Version 2)
Quarter: 2020Q4

REPORT INFORMATION
  Report Type: Report from Study
  Country: None (occurrence: ES)
  Receive Date: 20181113
  Receipt Date: 20201104
  Transmission Date: 20210113
  Serious: Yes (Other)
  Sender: FDA-Public Use
  Company Number: ES-ABBVIE-18P-144-2552944-00

PATIENT
  Age: 62 Year
  Sex: Female

DRUGS (16)
  1. HUMIRA [Suspect]
     Active Substance: ADALIMUMAB
     Indication: COLITIS ULCERATIVE
     Route: 058
     Dates: start: 20170518, end: 20170712
  2. MESALAZINE [Concomitant]
     Active Substance: MESALAMINE
     Indication: COLITIS ULCERATIVE
     Route: 048
     Dates: start: 20130503, end: 20181108
  3. MESALAZINE [Concomitant]
     Active Substance: MESALAMINE
     Dosage: ON DEMAND
     Route: 054
     Dates: start: 20130611
  4. METHOTREXATE. [Concomitant]
     Active Substance: METHOTREXATE
     Indication: COLITIS ULCERATIVE
     Route: 048
     Dates: start: 20200130
  5. CALCIFEDIOL [Concomitant]
     Active Substance: CALCIFEDIOL
     Indication: COLITIS ULCERATIVE
     Route: 048
     Dates: start: 20201029
  6. LANSOPRAZOL [Concomitant]
     Active Substance: LANSOPRAZOLE
     Indication: COLITIS ULCERATIVE
     Route: 048
     Dates: start: 20201014
  7. VEDOLIZUMAB [Concomitant]
     Active Substance: VEDOLIZUMAB
     Indication: COLITIS ULCERATIVE
     Dosage: WEEK O, 2, 6;?AFETER EVERY 8 WEEKS
     Route: 041
     Dates: start: 20200619
  8. INFLIXIMAB [Concomitant]
     Active Substance: INFLIXIMAB
     Indication: COLITIS ULCERATIVE
     Route: 042
     Dates: start: 20180313, end: 20181108
  9. MASTICAL UNIDIA [Concomitant]
     Indication: CALCIUM DEFICIENCY
     Dosage: 1000/800 MG/IU
     Dates: start: 20170920, end: 20201014
  10. HUMIRA [Suspect]
     Active Substance: ADALIMUMAB
     Route: 058
     Dates: start: 20170713, end: 201712
  11. SIMVASTATINA [Concomitant]
     Active Substance: SIMVASTATIN
     Indication: HYPERCHOLESTEROLAEMIA
     Route: 048
     Dates: start: 20170920
  12. MASTICAL UNIDIA [Concomitant]
     Indication: VITAMIN D DEFICIENCY
  13. OMEPRAZOLE. [Concomitant]
     Active Substance: OMEPRAZOLE
     Indication: COLITIS ULCERATIVE
     Route: 048
     Dates: start: 20151008, end: 20201014
  14. FLUTICREM [Concomitant]
     Indication: PSORIASIS
     Route: 061
     Dates: start: 20190503, end: 20200806
  15. CALCIPOTRIOL/BETAMETHASON SANDOZ [Concomitant]
     Indication: PSORIASIS
     Route: 061
     Dates: start: 20200806
  16. DEFLAZACORT [Concomitant]
     Active Substance: DEFLAZACORT
     Indication: COLITIS ULCERATIVE
     Route: 048
     Dates: start: 20200527, end: 20201014

REACTIONS (3)
  - Hypertransaminasaemia [Recovered/Resolved]
  - Autoimmune hepatitis [Not Recovered/Not Resolved]
  - Polyarthritis [Not Recovered/Not Resolved]

NARRATIVE: CASE EVENT DATE: 20181003
